FAERS Safety Report 6917718-9 (Version None)
Quarter: 2010Q3

REPORT INFORMATION
  Report Type: 
  Country: None (occurrence: None)
  Receive Date: 20100810
  Receipt Date: 20100805
  Transmission Date: 20110219
  Serious: Yes (Other)
  Sender: FDA-Public Use
  Company Number: CA-WYE-G06518910

PATIENT
  Age: 19 Year
  Sex: Male

DRUGS (1)
  1. TORISEL [Suspect]
     Indication: PERITONEAL MESOTHELIOMA MALIGNANT
     Route: 042
     Dates: start: 20100422, end: 20100701

REACTIONS (1)
  - DISEASE PROGRESSION [None]
